FAERS Safety Report 4350648-8 (Version None)
Quarter: 2004Q2

REPORT INFORMATION
  Report Type: 
  Country: None (occurrence: None)
  Receive Date: 20040427
  Receipt Date: 20040415
  Transmission Date: 20050107
  Serious: Yes (Hospitalization)
  Sender: FDA-Public Use
  Company Number: 2004-115208-NL

PATIENT
  Age: 37 Year
  Sex: Female

DRUGS (3)
  1. FOLLITROPIN BETA [Suspect]
     Indication: IN VITRO FERTILISATION
     Dosage: 300 IU QD, SUBCUTANEOUS
     Route: 058
     Dates: start: 20040401, end: 20040404
  2. FOLLITROPIN ALFA [Suspect]
     Indication: IN VITRO FERTILISATION
     Dosage: 300 IOU OD, SUBCUTANEOUS
     Route: 058
     Dates: start: 20040405, end: 20040408
  3. BUSERELIN ACETATE [Concomitant]

REACTIONS (3)
  - HYPERSENSITIVITY [None]
  - SWELLING [None]
  - URTICARIA [None]
